FAERS Safety Report 6933009-4 (Version None)
Quarter: 2010Q3

REPORT INFORMATION
  Report Type: 
  Country: None (occurrence: None)
  Receive Date: 20100818
  Receipt Date: 20100818
  Transmission Date: 20110219
  Serious: Yes (Hospitalization)
  Sender: FDA-Public Use
  Company Number: None

PATIENT
  Age: 71 Year
  Sex: Male
  Weight: 91.6 kg

DRUGS (7)
  1. AZACITIDINE [Suspect]
     Indication: MYELOFIBROSIS
     Dosage: 75MG/M2 DAILY- DAY 1-7 SUBCUTANEOUS
     Route: 058
     Dates: start: 20100615, end: 20100621
  2. AZACITIDINE [Suspect]
  3. AMLODIPINE [Concomitant]
  4. METOPROLOL [Concomitant]
  5. NEBIVOLOL HCL (BYSTOLIC) [Concomitant]
  6. OMEPRAZOLE MAGNESIUM [Concomitant]
  7. SIMVASTATIN [Concomitant]

REACTIONS (5)
  - AORTIC ANEURYSM [None]
  - HAEMOGLOBIN DECREASED [None]
  - PLATELET COUNT DECREASED [None]
  - PYREXIA [None]
  - THROMBOSIS [None]
